FAERS Safety Report 11617148 (Version 2)
Quarter: 2016Q2

REPORT INFORMATION
  Report Type: Not Available
  Country: FR (occurrence: FR)
  Receive Date: 20151009
  Receipt Date: 20160429
  Transmission Date: 20160815
  Serious: Yes (Other)
  Sender: FDA-Public Use
  Company Number: FR-MUNDIPHARMA DS AND PHARMACOVIGILANCE-GBR-2015-0031238

PATIENT
  Age: 45 Year
  Sex: Male

DRUGS (11)
  1. ATRACURIUM [Suspect]
     Active Substance: ATRACURIUM
     Indication: PRODUCT USED FOR UNKNOWN INDICATION
     Dosage: 30 MG, SINGLE
     Route: 042
     Dates: start: 20150914, end: 20150914
  2. PARACETAMOL [Concomitant]
     Active Substance: ACETAMINOPHEN
     Indication: PRODUCT USED FOR UNKNOWN INDICATION
     Dosage: 1 G, SINGLE
     Route: 065
     Dates: start: 20150914, end: 20150914
  3. FASTURTEC [Concomitant]
     Active Substance: RASBURICASE
     Indication: TUMOUR LYSIS SYNDROME
     Dosage: UNK
     Route: 065
     Dates: start: 20150915, end: 20150917
  4. OXYCONTIN [Suspect]
     Active Substance: OXYCODONE HYDROCHLORIDE
     Indication: PRODUCT USED FOR UNKNOWN INDICATION
     Dosage: 10 MG, BID
     Route: 048
     Dates: start: 201508, end: 20150914
  5. FASTURTEC [Concomitant]
     Active Substance: RASBURICASE
     Dosage: 1,5 MG/ML, UNK
     Route: 065
     Dates: start: 20150910, end: 20150910
  6. FERINJECT [Suspect]
     Active Substance: FERRIC CARBOXYMALTOSE
     Indication: ANAEMIA
     Dosage: 2 DF TOTAL
     Route: 042
     Dates: start: 20150914, end: 20150914
  7. METHYLPREDNISOLONE. [Suspect]
     Active Substance: METHYLPREDNISOLONE
     Indication: LYMPHOMA
     Dosage: 50 MG, BID
     Route: 042
     Dates: start: 20150910, end: 20150914
  8. HEPARIN [Concomitant]
     Active Substance: HEPARIN SODIUM
  9. SUFENTANIL MERCK [Suspect]
     Active Substance: SUFENTANIL
     Indication: NEPHROSTOMY
     Dosage: 25 MCG, SINGLE
     Route: 042
     Dates: start: 20150914, end: 20150914
  10. PROPOFOL FRESENIUS [Suspect]
     Active Substance: PROPOFOL
     Indication: NEPHROSTOMY
     Dosage: 200 MG, SINGLE
     Route: 042
     Dates: start: 20150914, end: 20150914
  11. ZINNAT                             /00454602/ [Suspect]
     Active Substance: CEFUROXIME SODIUM
     Indication: NEPHROSTOMY
     Dosage: 1.5 MG, DAILY
     Route: 042
     Dates: start: 20150914, end: 20150914

REACTIONS (6)
  - Mixed liver injury [Recovered/Resolved]
  - Pulmonary embolism [Unknown]
  - Renal impairment [Unknown]
  - Escherichia sepsis [Unknown]
  - Respiratory distress [Unknown]
  - Tumour lysis syndrome [Unknown]

NARRATIVE: CASE EVENT DATE: 20150911
